FAERS Safety Report 5134744-3 (Version None)
Quarter: 2006Q4

REPORT INFORMATION
  Report Type: 
  Country: None (occurrence: None)
  Receive Date: 20061019
  Receipt Date: 20061004
  Transmission Date: 20070319
  Serious: Yes (Hospitalization)
  Sender: FDA-Public Use
  Company Number: 20063252

PATIENT
  Sex: Female

DRUGS (1)
  1. LIORESAL [Suspect]
     Indication: MUSCLE SPASTICITY
     Dosage: 1600 MCG,DAILY, INTRATHECAL
     Route: 037

REACTIONS (4)
  - AGITATION [None]
  - DEPRESSED LEVEL OF CONSCIOUSNESS [None]
  - OVERDOSE [None]
  - POST PROCEDURAL COMPLICATION [None]
